FAERS Safety Report 6765547-1 (Version None)
Quarter: 2010Q2

REPORT INFORMATION
  Report Type: 
  Country: None (occurrence: None)
  Receive Date: 20100611
  Receipt Date: 20100608
  Transmission Date: 20101027
  Serious: Yes (Hospitalization, Other)
  Sender: FDA-Public Use
  Company Number: BE-ABBOTT-10P-013-0634630-00

PATIENT
  Sex: Female
  Weight: 55 kg

DRUGS (3)
  1. HUMIRA [Suspect]
     Indication: PSORIASIS
     Route: 058
     Dates: start: 20080516, end: 20100319
  2. HUMIRA [Suspect]
     Dates: start: 20100525
  3. EDRONAX [Concomitant]
     Indication: DEPRESSION
     Route: 048
     Dates: start: 20100101

REACTIONS (3)
  - HAEMORRHOIDS [None]
  - PAIN [None]
  - RECTAL FISSURE [None]
